FAERS Safety Report 4508351-7 (Version None)
Quarter: 2004Q4

REPORT INFORMATION
  Report Type: 
  Country: None (occurrence: None)
  Receive Date: 20041123
  Receipt Date: 20040116
  Transmission Date: 20050328
  Serious: No
  Sender: FDA-Public Use
  Company Number: US-GLAXOSMITHKLINE-A0493578A

PATIENT
  Age: 57 Year
  Sex: Male

DRUGS (5)
  1. WELLBUTRIN SR [Suspect]
     Dosage: 150MG TWICE PER DAY
     Route: 048
     Dates: start: 20031224
  2. LORTAB [Concomitant]
  3. SOMA [Concomitant]
  4. XANAX [Concomitant]
  5. SLEEP AID [Concomitant]

REACTIONS (1)
  - INSOMNIA [None]
